FAERS Safety Report 7294623-2 (Version None)
Quarter: 2011Q1

REPORT INFORMATION
  Report Type: 
  Country: None (occurrence: None)
  Receive Date: 20110202
  Receipt Date: 20110121
  Transmission Date: 20110831
  Serious: Yes (Other)
  Sender: FDA-Public Use
  Company Number: 2011P1004084

PATIENT
  Age: 4 Year
  Sex: Female
  Weight: 14.5151 kg

DRUGS (3)
  1. CETIRIZINE HCL [Suspect]
     Indication: MULTIPLE ALLERGIES
     Dosage: 1/2 TSP; Q24H; PO
     Route: 048
     Dates: start: 20110111, end: 20110120
  2. PREV MEDS [Concomitant]
  3. MIRALAX [Concomitant]

REACTIONS (1)
  - PERSONALITY CHANGE [None]
